FAERS Safety Report 6146456-8 (Version None)
Quarter: 2009Q2

REPORT INFORMATION
  Report Type: 
  Country: None (occurrence: None)
  Receive Date: 20090407
  Receipt Date: 20090331
  Transmission Date: 20091009
  Serious: Yes (Hospitalization)
  Sender: FDA-Public Use
  Company Number: A0776164A

PATIENT
  Age: 82 Year
  Sex: Male

DRUGS (6)
  1. VALTREX [Suspect]
     Dosage: 1G THREE TIMES PER DAY
     Route: 048
     Dates: start: 20090326, end: 20090326
  2. TOPROL-XL [Concomitant]
  3. PRINIVIL [Concomitant]
  4. LASIX [Concomitant]
  5. VITAMINS [Concomitant]
  6. POTASSIUM CHLORIDE [Concomitant]

REACTIONS (6)
  - ABDOMINAL DISCOMFORT [None]
  - BLOOD PRESSURE DECREASED [None]
  - CARDIAC PACEMAKER INSERTION [None]
  - DIZZINESS [None]
  - HEART RATE DECREASED [None]
  - PRESYNCOPE [None]
